FAERS Safety Report 18219656 (Version 3)
Quarter: 2021Q1

REPORT INFORMATION
  Report Type: Spontaneous
  Country: JP (occurrence: JP)
  Receive Date: 20200901
  Receipt Date: 20210216
  Transmission Date: 20210419
  Serious: Yes (Other)
  Sender: FDA-Public Use
  Company Number: JP-JNJFOC-20200846695

PATIENT
  Age: 72 Year
  Sex: Male
  Weight: 37.9 kg

DRUGS (9)
  1. PANTETHINE [Concomitant]
     Active Substance: PANTETHINE
     Indication: FAECAL MANAGEMENT
     Dosage: 100 MILLIGRAM, 1/DAY
     Route: 065
     Dates: start: 20200811, end: 20200821
  2. LYRICA [Concomitant]
     Active Substance: PREGABALIN
     Indication: LUMBAR SPINAL STENOSIS
     Dosage: 75 MILLIGRAM, 1/DAY
     Route: 065
  3. TAKECAB [Suspect]
     Active Substance: VONOPRAZAN FUMARATE
     Indication: GASTRIC ULCER HAEMORRHAGE
     Dosage: 20 MILLIGRAM, 1/DAY
     Route: 048
     Dates: start: 20200806, end: 20200821
  4. CALONAL [Concomitant]
     Active Substance: ACETAMINOPHEN
     Indication: OSTEOARTHRITIS
     Dosage: 600 MILLIGRAM, 1/DAY
     Route: 065
     Dates: start: 20000729, end: 20200803
  5. NOVAMIN [PROCHLORPERAZINE MESILATE] [Suspect]
     Active Substance: PROCHLORPERAZINE DIMETHANESULFONATE
     Indication: OSTEOARTHRITIS
     Dosage: 5 MILLIGRAM, EVERY 8 HRS
     Route: 048
     Dates: start: 20200729, end: 20200821
  6. MAGMITT [Concomitant]
     Active Substance: MAGNESIUM OXIDE
     Indication: FAECAL MANAGEMENT
     Dosage: 660 MILLIGRAM, 1/DAY
     Route: 065
     Dates: start: 20200811, end: 20200821
  7. PARIET [Concomitant]
     Active Substance: RABEPRAZOLE SODIUM
     Indication: GASTRIC ULCER HAEMORRHAGE
     Dosage: 10 MILLIGRAM, 1/DAY
     Route: 065
     Dates: start: 20200727, end: 20200805
  8. NEXIUM [Concomitant]
     Active Substance: ESOMEPRAZOLE MAGNESIUM
     Indication: GASTRIC ULCER HAEMORRHAGE
     Dosage: 20 MILLIGRAM, 1/DAY
     Route: 065
     Dates: start: 20200821
  9. TRAMADOL HYDROCHLORIDE. [Suspect]
     Active Substance: TRAMADOL HYDROCHLORIDE
     Indication: OSTEOARTHRITIS
     Dosage: 25 MILLIGRAM, 3/DAY
     Route: 048
     Dates: start: 20200729

REACTIONS (1)
  - Pancytopenia [Recovering/Resolving]

NARRATIVE: CASE EVENT DATE: 20200819
